FAERS Safety Report 10216013 (Version 1)
Quarter: 2014Q2

REPORT INFORMATION
  Report Type: Report from Study
  Country: GR (occurrence: GR)
  Receive Date: 20140604
  Receipt Date: 20140604
  Transmission Date: 20141212
  Serious: Yes (Other)
  Sender: FDA-Public Use
  Company Number: GR-ORION CORPORATION ORION PHARMA-ENTC2014-0191

PATIENT
  Age: 74 Year
  Sex: Male

DRUGS (2)
  1. STALEVO [Suspect]
     Indication: PARKINSON^S DISEASE
     Dosage: 100
     Route: 065
  2. STALEVO [Suspect]
     Dosage: 150
     Route: 065

REACTIONS (4)
  - Parkinson^s disease [Not Recovered/Not Resolved]
  - Urinary tract infection [Unknown]
  - Klebsiella infection [Unknown]
  - Malabsorption [Unknown]
